FAERS Safety Report 6649057-8 (Version None)
Quarter: 2010Q1

REPORT INFORMATION
  Report Type: 
  Country: None (occurrence: None)
  Receive Date: 20100319
  Receipt Date: 20100308
  Transmission Date: 20100710
  Serious: Yes (Hospitalization)
  Sender: FDA-Public Use
  Company Number: 008432

PATIENT
  Sex: Male

DRUGS (4)
  1. KEPPRA [Suspect]
     Indication: EPILEPSY
     Dosage: 500 MG BID, (DOSE WAS INCREASED)
  2. PRODILANTIN (PRODILANTIN) (NOT SPECIFIED) [Suspect]
     Dates: start: 20090831, end: 20090902
  3. CLAFORAN [Suspect]
     Dosage: 1 G BID
     Dates: start: 20090831, end: 20090902
  4. TEGRETOL [Suspect]
     Indication: EPILEPSY
     Dosage: 400 MG BID

REACTIONS (1)
  - CYTOLYTIC HEPATITIS [None]
